FAERS Safety Report 5822080-9 (Version None)
Quarter: 2008Q3

REPORT INFORMATION
  Report Type: 
  Country: None (occurrence: None)
  Receive Date: 20080725
  Receipt Date: 20080717
  Transmission Date: 20090109
  Serious: Yes (Hospitalization)
  Sender: FDA-Public Use
  Company Number: US-WYE-H04645008

PATIENT
  Sex: Male
  Weight: 89.35 kg

DRUGS (5)
  1. TORISEL [Suspect]
     Indication: METASTATIC RENAL CELL CARCINOMA
     Route: 042
     Dates: start: 20080410, end: 20080612
  2. TORISEL [Suspect]
     Route: 042
     Dates: start: 20080703
  3. PROCHLORPERAZINE EDISYLATE [Concomitant]
     Indication: NAUSEA
     Dosage: 10MG Q6HOURS PRN
     Route: 048
  4. PROCHLORPERAZINE EDISYLATE [Concomitant]
     Indication: VOMITING
  5. AMLODIPINE [Concomitant]
     Indication: HYPERTENSION
     Route: 048

REACTIONS (2)
  - DEHYDRATION [None]
  - RENAL FAILURE ACUTE [None]
